FAERS Safety Report 10310568 (Version 1)
Quarter: 2014Q3

REPORT INFORMATION
  Report Type: Spontaneous
  Country: US (occurrence: None)
  Receive Date: 20140715
  Receipt Date: 20140715
  Transmission Date: 20150326
  Serious: Yes (Other)
  Sender: FDA-Public Use
  Company Number: ADE14-023

PATIENT
  Age: 72 Year
  Sex: Male
  Weight: 84.4 kg

DRUGS (13)
  1. GLYCOPYRROLATE. [Concomitant]
     Active Substance: GLYCOPYRROLATE
  2. NEOSTIGMINE [Concomitant]
     Active Substance: NEOSTIGMINE
  3. ROCURONIUM BROMIDE INJECTION [Suspect]
     Active Substance: ROCURONIUM BROMIDE
     Indication: MUSCLE RELAXANT THERAPY
     Dosage: 70MG TOTAL DOSE, IV
     Route: 042
     Dates: start: 20140625, end: 20140625
  4. SEVOFLURANE/DESFLURANE [Concomitant]
  5. LABETALOL [Concomitant]
     Active Substance: LABETALOL\LABETALOL HYDROCHLORIDE
  6. CEFAZOLIN [Concomitant]
     Active Substance: CEFAZOLIN
  7. LIDOCAINE. [Concomitant]
     Active Substance: LIDOCAINE
  8. PROPOFOL. [Concomitant]
     Active Substance: PROPOFOL
  9. ONDANSETRON [Concomitant]
     Active Substance: ONDANSETRON
  10. LACTATED RINGERS [Concomitant]
     Active Substance: CALCIUM CHLORIDE\POTASSIUM CHLORIDE\SODIUM CHLORIDE\SODIUM LACTATE
  11. MIDAZOLAM [Concomitant]
     Active Substance: MIDAZOLAM\MIDAZOLAM HYDROCHLORIDE
  12. DEXAMETHASONE. [Concomitant]
     Active Substance: DEXAMETHASONE
  13. FENTANYL. [Concomitant]
     Active Substance: FENTANYL

REACTIONS (2)
  - Airway complication of anaesthesia [None]
  - Drug effect decreased [None]

NARRATIVE: CASE EVENT DATE: 20140625
